FAERS Safety Report 5629402-2 (Version None)
Quarter: 2008Q1

REPORT INFORMATION
  Report Type: 
  Country: None (occurrence: None)
  Receive Date: 20080215
  Receipt Date: 20080215
  Transmission Date: 20080703
  Serious: Yes (Other)
  Sender: FDA-Public Use
  Company Number: None

PATIENT
  Sex: Male
  Weight: 16.3295 kg

DRUGS (1)
  1. XOPENEX [Suspect]
     Indication: BRONCHIAL HYPERREACTIVITY
     Dosage: NEBULIZER
     Route: 055
     Dates: start: 20071227

REACTIONS (1)
  - RASH [None]
